FAERS Safety Report 9542465 (Version 2)
Quarter: 2013Q3

REPORT INFORMATION
  Report Type: Spontaneous
  Country: US (occurrence: US)
  Receive Date: 20130923
  Receipt Date: 20130923
  Transmission Date: 20140515
  Serious: No
  Sender: FDA-Public Use
  Company Number: US-MYLANLABS-2012S1015977

PATIENT
  Age: 47 Year
  Sex: Male

DRUGS (4)
  1. NITROGLYCERIN TRANSDERMAL SYSTEM [Suspect]
     Indication: CHEST PAIN
     Dosage: QD
     Route: 062
  2. DIOVAN [Concomitant]
     Indication: BLOOD PRESSURE INCREASED
  3. METOPROLOL [Concomitant]
     Indication: BLOOD PRESSURE INCREASED
  4. CRESTOR [Concomitant]
     Indication: BLOOD CHOLESTEROL INCREASED

REACTIONS (4)
  - Application site vesicles [Not Recovered/Not Resolved]
  - Application site erythema [Not Recovered/Not Resolved]
  - Application site pruritus [Not Recovered/Not Resolved]
  - Application site pain [Not Recovered/Not Resolved]
